FAERS Safety Report 4294129-9 (Version None)
Quarter: 2004Q1

REPORT INFORMATION
  Report Type: 
  Country: None (occurrence: None)
  Receive Date: 20040212
  Receipt Date: 20040212
  Transmission Date: 20041129
  Serious: No
  Sender: FDA-Public Use
  Company Number: None

PATIENT
  Age: 66 Year
  Sex: Male
  Weight: 57 kg

DRUGS (1)
  1. PRIMAXIN [Suspect]
     Indication: GANGRENE
     Dosage: 500MG IVPB Q12H
     Route: 042
     Dates: start: 20031118, end: 20031124

REACTIONS (1)
  - GRAND MAL CONVULSION [None]
